FAERS Safety Report 25278865 (Version 1)
Quarter: 2025Q2

REPORT INFORMATION
  Report Type: Spontaneous
  Country: SE (occurrence: SE)
  Receive Date: 20250507
  Receipt Date: 20250507
  Transmission Date: 20250716
  Serious: Yes (Hospitalization, Other)
  Sender: PFIZER
  Company Number: SE-TAKEDA-2025TUS024933

PATIENT
  Age: 48 Year
  Sex: Female
  Weight: 59 kg

DRUGS (9)
  1. CYKLOKAPRON [Suspect]
     Active Substance: TRANEXAMIC ACID
     Indication: Haemostasis
     Dosage: 1000 MG, 3X/DAY (Q8HR)
     Route: 042
     Dates: start: 20250227
  2. CYKLOKAPRON [Suspect]
     Active Substance: TRANEXAMIC ACID
     Indication: Hysterectomy
     Route: 042
  3. CYKLOKAPRON [Suspect]
     Active Substance: TRANEXAMIC ACID
     Indication: Haemostasis
     Route: 048
     Dates: start: 20250227
  4. CYKLOKAPRON [Suspect]
     Active Substance: TRANEXAMIC ACID
     Indication: Hysterectomy
     Route: 048
     Dates: start: 20250327
  5. VONICOG ALFA [Suspect]
     Active Substance: VONICOG ALFA
     Indication: Von Willebrand^s disease
     Route: 042
     Dates: start: 20250227
  6. VONICOG ALFA [Suspect]
     Active Substance: VONICOG ALFA
     Indication: Haemostasis
     Route: 042
     Dates: start: 20250228
  7. VONICOG ALFA [Suspect]
     Active Substance: VONICOG ALFA
     Indication: Hysterectomy
     Route: 042
     Dates: start: 20250301
  8. VONICOG ALFA [Suspect]
     Active Substance: VONICOG ALFA
     Route: 042
     Dates: start: 20250302
  9. VONICOG ALFA [Suspect]
     Active Substance: VONICOG ALFA
     Route: 042
     Dates: start: 20250303, end: 20250303

REACTIONS (3)
  - Pulmonary embolism [Recovering/Resolving]
  - Procedural pain [Recovering/Resolving]
  - Bedridden [Recovering/Resolving]

NARRATIVE: CASE EVENT DATE: 20250305
